FAERS Safety Report 15675761 (Version 1)
Quarter: 2018Q4

REPORT INFORMATION
  Report Type: Spontaneous
  Country: US (occurrence: US)
  Receive Date: 20181129
  Receipt Date: 20181129
  Transmission Date: 20190205
  Serious: Yes (Other)
  Sender: FDA-Public Use
  Company Number: None

PATIENT
  Age: 31 Year
  Sex: Female

DRUGS (3)
  1. HUMIRA [Suspect]
     Active Substance: ADALIMUMAB
     Indication: PSORIASIS
     Dosage: ?          OTHER FREQUENCY:EVERY 14 DAYS;?
     Route: 058
     Dates: start: 20181103
  2. PAROXETINE. [Concomitant]
     Active Substance: PAROXETINE
  3. MULTIVITAMIN LIQUID [Concomitant]

REACTIONS (1)
  - Malaise [None]

NARRATIVE: CASE EVENT DATE: 20181129
